FAERS Safety Report 6598926-6 (Version None)
Quarter: 2010Q1

REPORT INFORMATION
  Report Type: 
  Country: None (occurrence: None)
  Receive Date: 20100224
  Receipt Date: 20090309
  Transmission Date: 20100710
  Serious: No
  Sender: FDA-Public Use
  Company Number: US-BRISTOL-MYERS SQUIBB COMPANY-14535777

PATIENT
  Age: 52 Year
  Sex: Male
  Weight: 8 kg

DRUGS (1)
  1. GLUCOPHAGE [Suspect]
     Indication: METABOLIC SYNDROME
     Dates: start: 20081201

REACTIONS (1)
  - BLOOD INSULIN INCREASED [None]
